FAERS Safety Report 7122583-3 (Version None)
Quarter: 2010Q4

REPORT INFORMATION
  Report Type: 
  Country: None (occurrence: None)
  Receive Date: 20101124
  Receipt Date: 20101118
  Transmission Date: 20110411
  Serious: Yes (Other)
  Sender: FDA-Public Use
  Company Number: CA-JNJCH-2010023157

PATIENT
  Sex: Male

DRUGS (1)
  1. VISINE EYE DROPS [Suspect]
     Indication: DRY EYE
     Dosage: TEXT:ONE DROP IN LEFT EYE ONCE
     Route: 047
     Dates: start: 20100930, end: 20100930

REACTIONS (11)
  - EYE DISCHARGE [None]
  - EYE IRRITATION [None]
  - EYE PAIN [None]
  - EYELID DISORDER [None]
  - FOREIGN BODY IN EYE [None]
  - IMPAIRED WORK ABILITY [None]
  - OCULAR HYPERAEMIA [None]
  - SCLERAL DISCOLOURATION [None]
  - SENSATION OF FOREIGN BODY [None]
  - SUPERFICIAL INJURY OF EYE [None]
  - VISUAL ACUITY REDUCED [None]
